FAERS Safety Report 5115712-4 (Version None)
Quarter: 2006Q3

REPORT INFORMATION
  Report Type: 
  Country: None (occurrence: None)
  Receive Date: 20060927
  Receipt Date: 20060828
  Transmission Date: 20061208
  Serious: Yes (Hospitalization)
  Sender: FDA-Public Use
  Company Number: PHBS2006NL12945

PATIENT
  Age: 71 Year
  Sex: Female

DRUGS (2)
  1. DICLOFENAC SODIUM [Suspect]
     Indication: BACK PAIN
     Dosage: 75 MG, BID
     Route: 048
     Dates: start: 20041013, end: 20060817
  2. PANTOZOL [Concomitant]
     Dosage: 20 MG, QD
     Dates: start: 20050628, end: 20060817

REACTIONS (7)
  - ARTHRALGIA [None]
  - CREPITATIONS [None]
  - MUSCULOSKELETAL STIFFNESS [None]
  - OBESITY [None]
  - OSTEONECROSIS [None]
  - PAIN [None]
  - WHEELCHAIR USER [None]
